FAERS Safety Report 6672059-2 (Version None)
Quarter: 2010Q2

REPORT INFORMATION
  Report Type: 
  Country: None (occurrence: None)
  Receive Date: 20100406
  Receipt Date: 20100331
  Transmission Date: 20101027
  Serious: Yes (Death, Hospitalization, Other)
  Sender: FDA-Public Use
  Company Number: 2010JP000832

PATIENT
  Age: 75 Year
  Sex: Male
  Weight: 55 kg

DRUGS (6)
  1. PROGRAF [Suspect]
     Indication: RHEUMATOID ARTHRITIS
     Dosage: 1 MG, UID/QD, ORAL
     Route: 048
     Dates: start: 20091029, end: 20100209
  2. RHEUMATREX [Suspect]
     Indication: RHEUMATOID ARTHRITIS
     Dosage: 8 MG, WEEKLY, ORAL
     Route: 048
     Dates: end: 20100209
  3. PREDNISOLONE [Suspect]
     Indication: RHEUMATOID ARTHRITIS
     Dosage: 5 MG, UID/QD, ORAL
     Route: 048
     Dates: end: 20100209
  4. FOLIC ACID [Concomitant]
  5. OLMESARTAN MEDOXOMIL [Concomitant]
  6. FAMOTIDINE [Concomitant]

REACTIONS (2)
  - NO THERAPEUTIC RESPONSE [None]
  - PNEUMONIA BACTERIAL [None]
